FAERS Safety Report 24752946 (Version 1)
Quarter: 2024Q4

REPORT INFORMATION
  Report Type: Report from Study
  Country: IN (occurrence: IN)
  Receive Date: 20241219
  Receipt Date: 20241219
  Transmission Date: 20250115
  Serious: Yes (Congenital Anomaly, Other)
  Sender: UCB
  Company Number: IN-UCBSA-2024065527

PATIENT

DRUGS (1)
  1. LEVETIRACETAM [Suspect]
     Active Substance: LEVETIRACETAM
     Indication: Epilepsy
     Dosage: UNK
     Route: 064

REACTIONS (2)
  - Talipes [Unknown]
  - Maternal exposure during pregnancy [Unknown]
